FAERS Safety Report 15814023 (Version 1)
Quarter: 2019Q1

REPORT INFORMATION
  Report Type: Spontaneous
  Country: US (occurrence: US)
  Receive Date: 20190111
  Receipt Date: 20190111
  Transmission Date: 20190417
  Serious: No
  Sender: FDA-Public Use
  Company Number: US-JUBILANT CADISTA PHARMACEUTICALS-2018JUB00405

PATIENT
  Age: 75 Year
  Sex: Male
  Weight: 67.12 kg

DRUGS (9)
  1. TERAZOSIN [Suspect]
     Active Substance: TERAZOSIN\TERAZOSIN HYDROCHLORIDE
     Indication: BLADDER SPHINCTER ATONY
     Dosage: 10 MG, 1X/DAY AT NIGHT
     Route: 048
     Dates: start: 20180923
  2. TERAZOSIN [Suspect]
     Active Substance: TERAZOSIN\TERAZOSIN HYDROCHLORIDE
     Indication: MICTURITION URGENCY
  3. TERAZOSIN [Suspect]
     Active Substance: TERAZOSIN\TERAZOSIN HYDROCHLORIDE
     Indication: BENIGN PROSTATIC HYPERPLASIA
     Dosage: 10 MG, 1X/DAY AT NIGHT
     Route: 048
     Dates: start: 20180830, end: 201809
  4. UNSPECIFIED NASAL SPRAYS [Concomitant]
  5. TERAZOSIN [Suspect]
     Active Substance: TERAZOSIN\TERAZOSIN HYDROCHLORIDE
     Indication: BENIGN PROSTATIC HYPERPLASIA
     Dosage: 10 MG, 1X/DAY AT NIGHT
     Route: 048
     Dates: start: 201809, end: 20180922
  6. FISH OIL [Concomitant]
     Active Substance: FISH OIL
  7. OMEPRAZOLE. [Concomitant]
     Active Substance: OMEPRAZOLE
     Dosage: 20 MG, 1X/DAY IN THE MORNING
  8. TERAZOSIN [Suspect]
     Active Substance: TERAZOSIN\TERAZOSIN HYDROCHLORIDE
     Indication: NOCTURIA
  9. TERAZOSIN [Suspect]
     Active Substance: TERAZOSIN\TERAZOSIN HYDROCHLORIDE
     Indication: BLADDER SPHINCTER ATONY

REACTIONS (3)
  - Nocturia [Recovered/Resolved]
  - Therapeutic response decreased [Recovered/Resolved]
  - Dysuria [Recovered/Resolved]

NARRATIVE: CASE EVENT DATE: 20180920
